FAERS Safety Report 24259023 (Version 1)
Quarter: 2024Q3

REPORT INFORMATION
  Report Type: Spontaneous
  Country: US (occurrence: US)
  Receive Date: 20240828
  Receipt Date: 20240828
  Transmission Date: 20241016
  Serious: No
  Sender: GLAND PHARMA
  Company Number: US-GLANDPHARMA-US-2024GLNSPO00702

PATIENT
  Sex: Male

DRUGS (1)
  1. CLOFARABINE [Suspect]
     Active Substance: CLOFARABINE
     Indication: Leukaemia
     Route: 065

REACTIONS (4)
  - White blood cell count decreased [Unknown]
  - Asthenia [Unknown]
  - Somnolence [Unknown]
  - Hepatic enzyme increased [Unknown]
